FAERS Safety Report 12968346 (Version 1)
Quarter: 2016Q4

REPORT INFORMATION
  Report Type: Spontaneous
  Country: US (occurrence: US)
  Receive Date: 20161120
  Receipt Date: 20161120
  Transmission Date: 20170207
  Serious: No
  Sender: FDA-Public Use
  Company Number: None

PATIENT
  Sex: Female

DRUGS (1)
  1. EPCLUSA [Suspect]
     Active Substance: SOFOSBUVIR\VELPATASVIR
     Indication: HEPATITIS C
     Dosage: 400 MG/100 MG ONCE DAILY ORALLY
     Route: 048
     Dates: start: 20161109

REACTIONS (4)
  - Back pain [None]
  - Sleep disorder [None]
  - Eating disorder [None]
  - Pain [None]
